FAERS Safety Report 7146394-8 (Version None)
Quarter: 2010Q4

REPORT INFORMATION
  Report Type: 
  Country: None (occurrence: None)
  Receive Date: 20101208
  Receipt Date: 20100429
  Transmission Date: 20110411
  Serious: Yes (Other)
  Sender: FDA-Public Use
  Company Number: US-BRISTOL-MYERS SQUIBB COMPANY-15086119

PATIENT
  Sex: Male

DRUGS (1)
  1. PRAVACHOL [Suspect]

REACTIONS (1)
  - RHABDOMYOLYSIS [None]
